FAERS Safety Report 19941502 (Version 1)
Quarter: 2021Q4

REPORT INFORMATION
  Report Type: Spontaneous
  Country: ES (occurrence: ES)
  Receive Date: 20211011
  Receipt Date: 20211011
  Transmission Date: 20220303
  Serious: Yes (Hospitalization)
  Sender: FDA-Public Use
  Company Number: None

PATIENT
  Age: 76 Year
  Sex: Male

DRUGS (1)
  1. ATORVASTATIN [Suspect]
     Active Substance: ATORVASTATIN
     Indication: Dyslipidaemia
     Dosage: UNK, QD (0-0-1)
     Route: 048
     Dates: start: 20150311, end: 20200507

REACTIONS (1)
  - Necrotising myositis [Recovered/Resolved]

NARRATIVE: CASE EVENT DATE: 20200507
